FAERS Safety Report 26027598 (Version 1)
Quarter: 2025Q4

REPORT INFORMATION
  Report Type: Report from Study
  Country: US (occurrence: US)
  Receive Date: 20251111
  Receipt Date: 20251111
  Transmission Date: 20260117
  Serious: Yes (Other)
  Sender: ALEXION PHARMACEUTICALS
  Company Number: US-AstraZeneca-CH-00988759A

PATIENT
  Age: 11 Year
  Sex: Female

DRUGS (2)
  1. SELUMETINIB [Suspect]
     Active Substance: SELUMETINIB
     Indication: Neurofibromatosis
     Route: 065
  2. SELUMETINIB [Suspect]
     Active Substance: SELUMETINIB
     Indication: Neurofibroma

REACTIONS (1)
  - Neoplasm progression [Unknown]
